FAERS Safety Report 18917793 (Version 1)
Quarter: 2021Q1

REPORT INFORMATION
  Report Type: Report from Study
  Country: CO (occurrence: CO)
  Receive Date: 20210219
  Receipt Date: 20210219
  Transmission Date: 20210420
  Serious: Yes (Hospitalization, Other)
  Sender: FDA-Public Use
  Company Number: CO-TAKEDA-2020TUS054169

PATIENT
  Age: 74 Year
  Sex: Male
  Weight: 64 kg

DRUGS (2)
  1. ICATIBANT [Suspect]
     Active Substance: ICATIBANT ACETATE
     Indication: HEREDITARY ANGIOEDEMA
     Dosage: 30MG/3ML, 1 SYRINGE EVERY 6 HOURS, MAXIMUM  3 IN 24 HOURS
     Route: 058
     Dates: start: 20190302
  2. ICATIBANT [Suspect]
     Active Substance: ICATIBANT ACETATE
     Indication: HEREDITARY ANGIOEDEMA
     Dosage: 30MG/3ML, 1 SYRINGE EVERY 6 HOURS, MAXIMUM  3 IN 24 HOURS
     Route: 058
     Dates: start: 20190302

REACTIONS (1)
  - Intestinal obstruction [Unknown]

NARRATIVE: CASE EVENT DATE: 20210213
